FAERS Safety Report 23802582 (Version 2)
Quarter: 2024Q3

REPORT INFORMATION
  Report Type: Spontaneous
  Country: US (occurrence: US)
  Receive Date: 20240501
  Receipt Date: 20240814
  Transmission Date: 20241017
  Serious: No
  Sender: AMNEAL
  Company Number: US-AMNEAL PHARMACEUTICALS-2024-AMRX-01299

PATIENT

DRUGS (1)
  1. ATROPINE SULFATE [Suspect]
     Active Substance: ATROPINE SULFATE
     Indication: Product used for unknown indication
     Dosage: 0.5/5 MG/ML
     Route: 065

REACTIONS (3)
  - Device issue [Unknown]
  - Device defective [Unknown]
  - No adverse event [Unknown]
